FAERS Safety Report 6593997-5 (Version None)
Quarter: 2010Q1

REPORT INFORMATION
  Report Type: 
  Country: None (occurrence: None)
  Receive Date: 20100222
  Receipt Date: 20100218
  Transmission Date: 20100710
  Serious: Yes (Hospitalization)
  Sender: FDA-Public Use
  Company Number: DK-TEVA-203586ISR

PATIENT
  Sex: Female
  Weight: 3 kg

DRUGS (2)
  1. CITALOPRAM HYDROBROMIDE [Suspect]
     Route: 064
  2. PIVMECILLINAM HYDROCHLORIDE [Concomitant]
     Route: 064

REACTIONS (3)
  - HEART RATE DECREASED [None]
  - NEONATAL ASPHYXIA [None]
  - RESPIRATORY DISTRESS [None]
